FAERS Safety Report 8517388-2 (Version None)
Quarter: 2012Q3

REPORT INFORMATION
  Report Type: 
  Country: None (occurrence: None)
  Receive Date: 20120718
  Receipt Date: 20120525
  Transmission Date: 20120928
  Serious: No
  Sender: FDA-Public Use
  Company Number: US-PFIZER INC-2012119923

PATIENT
  Sex: Female
  Weight: 81.6 kg

DRUGS (2)
  1. LEVOXYL [Suspect]
     Indication: HYPOTHYROIDISM
     Dosage: 100 UG, 1X/DAY
     Route: 048
     Dates: end: 20120501
  2. LEVOXYL [Suspect]
     Dosage: 0.088 MG, UNK
     Dates: start: 20120401, end: 20120501

REACTIONS (4)
  - AGITATION [None]
  - ANXIETY [None]
  - DYSPHAGIA [None]
  - PALPITATIONS [None]
